FAERS Safety Report 24388070 (Version 1)
Quarter: 2024Q4

REPORT INFORMATION
  Report Type: Spontaneous
  Country: US (occurrence: None)
  Receive Date: 20241002
  Receipt Date: 20241002
  Transmission Date: 20250115
  Serious: Yes (Death)
  Sender: Public
  Company Number: None

PATIENT
  Age: 58 Year
  Sex: Male

DRUGS (11)
  1. DUPIXENT [Suspect]
     Active Substance: DUPILUMAB
     Indication: Asthma
     Dosage: OTHER FREQUENCY : Q 2 WEEKS;?
     Route: 058
     Dates: start: 20240326, end: 20240912
  2. ALBUTEROL HFA INH (200 PUFFS) 6.7GM [Concomitant]
  3. ALENDRONATE [Concomitant]
     Active Substance: ALENDRONATE SODIUM
  4. ALPRAZOLAM [Concomitant]
     Active Substance: ALPRAZOLAM
  5. ASPIRIN 81MG EC LOW DOSE TABLETS [Concomitant]
  6. CO REG 3.125MG TABLETS [Concomitant]
  7. DUONEB INHALATION SOLUTION 3ML [Concomitant]
  8. FORTEO [Concomitant]
     Active Substance: TERIPARATIDE
  9. FUROSEMIDE [Concomitant]
     Active Substance: FUROSEMIDE
  10. HYDROXYZINE HCL 25MG TABS (WHITE) [Concomitant]
  11. JARDIANCE 1 0MG TABLETS [Concomitant]

REACTIONS (1)
  - Postoperative wound infection [None]

NARRATIVE: CASE EVENT DATE: 20240912
